APPROVED DRUG PRODUCT: MYDRIACYL
Active Ingredient: TROPICAMIDE
Strength: 1%
Dosage Form/Route: SOLUTION/DROPS;OPHTHALMIC
Application: A084306 | Product #001 | TE Code: AT
Applicant: ALCON LABORATORIES INC
Approved: Approved Prior to Jan 1, 1982 | RLD: Yes | RS: Yes | Type: RX